FAERS Safety Report 7480069-0 (Version None)
Quarter: 2011Q2

REPORT INFORMATION
  Report Type: 
  Country: None (occurrence: None)
  Receive Date: 20110516
  Receipt Date: 20110429
  Transmission Date: 20111010
  Serious: No
  Sender: FDA-Public Use
  Company Number: US-BIOGENIDEC-2011BI011624

PATIENT
  Age: 42 Year
  Sex: Male

DRUGS (2)
  1. TYSABRI [Suspect]
     Indication: MULTIPLE SCLEROSIS
     Route: 042
     Dates: start: 20100726, end: 20110328
  2. DEPAKOTE [Concomitant]
     Indication: HEADACHE

REACTIONS (2)
  - TOXIC ENCEPHALOPATHY [None]
  - MULTIPLE SCLEROSIS [None]
